FAERS Safety Report 7444184-X (Version None)
Quarter: 2011Q2

REPORT INFORMATION
  Report Type: 
  Country: None (occurrence: None)
  Receive Date: 20110429
  Receipt Date: 20110120
  Transmission Date: 20111010
  Serious: Yes (Hospitalization, Other)
  Sender: FDA-Public Use
  Company Number: US-BAYER-201039201NA

PATIENT
  Age: 34 Year
  Sex: Female
  Weight: 95.238 kg

DRUGS (13)
  1. YASMIN [Suspect]
  2. ALLOPURINOL [Concomitant]
  3. MELOXICAM [Concomitant]
  4. NAPROXEN [Concomitant]
  5. YAZ [Suspect]
     Dosage: UNK
     Dates: start: 20090801
  6. SPIRONOLACTONE [Concomitant]
  7. HYDROCHLOROTHIAZIDE [Concomitant]
  8. ACIPHEX [Concomitant]
     Dosage: 20 MG, BID
     Dates: start: 20070701
  9. OCELLA [Suspect]
     Indication: CONTRACEPTION
     Dosage: UNK
     Dates: start: 20090901, end: 20091001
  10. FUROSEMIDE [Concomitant]
  11. TRICOR [Concomitant]
  12. YAZ [Suspect]
     Indication: CONTRACEPTION
     Dosage: UNK
     Dates: start: 20071201, end: 20090301
  13. LIPOFENE [Concomitant]

REACTIONS (6)
  - GALLBLADDER DISORDER [None]
  - INFECTION [None]
  - BILIARY DYSKINESIA [None]
  - ABDOMINAL PAIN [None]
  - CHOLECYSTITIS [None]
  - HERNIA OBSTRUCTIVE [None]
